FAERS Safety Report 7049955-X (Version None)
Quarter: 2010Q4

REPORT INFORMATION
  Report Type: 
  Country: None (occurrence: None)
  Receive Date: 20101013
  Receipt Date: 20101004
  Transmission Date: 20110411
  Serious: Yes (Hospitalization)
  Sender: FDA-Public Use
  Company Number: 1000016610

PATIENT
  Sex: Female
  Weight: 80 kg

DRUGS (9)
  1. SAVELLA [Suspect]
     Indication: FIBROMYALGIA
     Dosage: 25 MG (12.5 MG,2 IN 1 D),ORAL
     Route: 048
     Dates: start: 20100326, end: 20100327
  2. VIVELLE DOT (ESTRADIOL) (TRANSDERMAL) (ESTRADIOL) [Concomitant]
  3. PREVACID (LANSOPRAZOLE) (CAPSULES) (LANSOPRAZOLE) [Concomitant]
  4. CLONAZEPAM (CLONAZEPAM) (TABLETS) (CLONAZEPAM) [Concomitant]
  5. LUNESTA (ESZOPICLONE) (TABLETS) (ESZOPICLONE) [Concomitant]
  6. RELPAX (ELETRIPTAN HYDROBROMIDE) (TABLETS) (ELETRIPTAN HYDROBROMIDE) [Concomitant]
  7. HUMIRA (ADALIMUMAB) (INJECTION) (ADALIMUMAB) [Concomitant]
  8. MULTIVITAMINS (MULTIVITAMINS) (TABLETS) (MULTIVITAMINS) [Concomitant]
  9. MINERAL SUPPLEMENT (NOS) (MINERAL SUPPLEMENT (NOS)) (MINERAL SUPPLEMEN [Concomitant]

REACTIONS (1)
  - PANCREATITIS ACUTE [None]
